FAERS Safety Report 7920095-8 (Version None)
Quarter: 2011Q4

REPORT INFORMATION
  Report Type: 
  Country: None (occurrence: None)
  Receive Date: 20111117
  Receipt Date: 20111107
  Transmission Date: 20120403
  Serious: Yes (Other)
  Sender: FDA-Public Use
  Company Number: US-BAYER-2011-054971

PATIENT
  Age: 18 Year
  Sex: Female
  Weight: 81.633 kg

DRUGS (4)
  1. YAZ [Suspect]
     Indication: CONTRACEPTION
     Dosage: UNK
     Dates: start: 20090601, end: 20090901
  2. HYDROCODONE BITARTRATE [Concomitant]
     Dosage: UNK
     Route: 048
     Dates: start: 20090727
  3. CHLORHEXIDINE GLUCONATE [Concomitant]
     Dosage: 12 %, UNK
     Dates: start: 20090727
  4. PROMETHAZINE [Concomitant]
     Dosage: 25 MG, UNK
     Dates: start: 20090728

REACTIONS (4)
  - DYSPNOEA [None]
  - CHOLECYSTITIS ACUTE [None]
  - BACK PAIN [None]
  - ABDOMINAL PAIN [None]
